FAERS Safety Report 19676332 (Version 4)
Quarter: 2021Q4

REPORT INFORMATION
  Report Type: Spontaneous
  Country: RO (occurrence: RO)
  Receive Date: 20210809
  Receipt Date: 20211129
  Transmission Date: 20220303
  Serious: Yes (Death, Hospitalization, Other)
  Sender: FDA-Public Use
  Company Number: RO-BRISTOL-MYERS SQUIBB COMPANY-BMS-2021-075597

PATIENT
  Age: 70 Year
  Sex: Female
  Weight: 35 kg

DRUGS (2)
  1. NIVOLUMAB [Suspect]
     Active Substance: NIVOLUMAB
     Indication: Bronchial neoplasm
     Dosage: 200 MILLIGRAM
     Route: 042
     Dates: start: 20210722, end: 20210722
  2. NIVOLUMAB [Suspect]
     Active Substance: NIVOLUMAB
     Dosage: 40 MILLIGRAM
     Route: 042
     Dates: start: 20210722, end: 20210722

REACTIONS (8)
  - Vocal cord paralysis [Fatal]
  - Paralysis [Fatal]
  - Pleurisy [Fatal]
  - Pyrexia [Not Recovered/Not Resolved]
  - Dysphagia [Unknown]
  - Encephalitis [Unknown]
  - Pericardial effusion [Unknown]
  - Metastases to central nervous system [Unknown]

NARRATIVE: CASE EVENT DATE: 20210727
